FAERS Safety Report 25454167 (Version 1)
Quarter: 2025Q2

REPORT INFORMATION
  Report Type: Spontaneous
  Country: DE (occurrence: DE)
  Receive Date: 20250619
  Receipt Date: 20250619
  Transmission Date: 20250716
  Serious: Yes (Life-Threatening, Other)
  Sender: TEVA
  Company Number: None

PATIENT
  Age: 47 Year
  Sex: Female
  Weight: 110 kg

DRUGS (2)
  1. PREDNISOLONE [Suspect]
     Active Substance: PREDNISOLONE
     Indication: Mixed connective tissue disease
     Route: 065
     Dates: start: 201910, end: 201911
  2. MARCUMAR [Concomitant]
     Active Substance: PHENPROCOUMON
     Indication: Product used for unknown indication
     Route: 065

REACTIONS (12)
  - Autoimmune hepatitis [Recovered/Resolved with Sequelae]
  - Systemic lupus erythematosus [Recovered/Resolved with Sequelae]
  - Fibrosis [Recovered/Resolved with Sequelae]
  - Pancreatitis necrotising [Recovered/Resolved with Sequelae]
  - Chronic kidney disease [Recovered/Resolved with Sequelae]
  - Product prescribing issue [Unknown]
  - Autoimmune disorder [Recovered/Resolved with Sequelae]
  - Marital problem [Unknown]
  - Cushing^s syndrome [Recovered/Resolved with Sequelae]
  - Addison^s disease [Recovered/Resolved with Sequelae]
  - Autoimmune pancreatitis [Recovered/Resolved with Sequelae]
  - Antinuclear antibody [Recovered/Resolved with Sequelae]

NARRATIVE: CASE EVENT DATE: 20190101
